FAERS Safety Report 25073779 (Version 1)
Quarter: 2025Q1

REPORT INFORMATION
  Report Type: Spontaneous
  Country: US (occurrence: None)
  Receive Date: 20250312
  Receipt Date: 20250312
  Transmission Date: 20250409
  Serious: Yes (Death)
  Sender: FDA-CTU
  Company Number: None

PATIENT
  Age: 28 Year
  Sex: Female

DRUGS (10)
  1. MIRALAX [Suspect]
     Active Substance: POLYETHYLENE GLYCOL 3350
  2. CALCIUM\VITAMIN D [Suspect]
     Active Substance: CALCIUM\VITAMIN D
  3. DEPAKOTE SPRINKLES [Suspect]
     Active Substance: DIVALPROEX SODIUM
  4. HUMIRA [Suspect]
     Active Substance: ADALIMUMAB
  5. LAMICTAL [Suspect]
     Active Substance: LAMOTRIGINE
  6. PHENOBARBITAL [Suspect]
     Active Substance: PHENOBARBITAL
  7. VALIUM [Suspect]
     Active Substance: DIAZEPAM
  8. EPIDIOLEX [Suspect]
     Active Substance: CANNABIDIOL
  9. AZTRENONAM [Concomitant]
  10. PENICILLIN [Concomitant]
     Active Substance: PENICILLIN

REACTIONS (1)
  - Death [None]

NARRATIVE: CASE EVENT DATE: 20250215
